FAERS Safety Report 6829928-X (Version None)
Quarter: 2010Q3

REPORT INFORMATION
  Report Type: 
  Country: None (occurrence: None)
  Receive Date: 20100711
  Receipt Date: 20100331
  Transmission Date: 20110219
  Serious: No
  Sender: FDA-Public Use
  Company Number: US-ALLERGAN-1004253US

PATIENT
  Age: 49 Year
  Sex: Female

DRUGS (3)
  1. LATISSE [Suspect]
     Indication: PRODUCT USED FOR UNKNOWN INDICATION
     Dosage: 1 GTT, QHS
     Dates: start: 20100330
  2. MAXALT                             /01406501/ [Concomitant]
     Indication: MIGRAINE
     Dosage: UNK
  3. VALTREX [Concomitant]
     Indication: GENITAL HERPES
     Dosage: UNK

REACTIONS (3)
  - EYE IRRITATION [None]
  - EYE PRURITUS [None]
  - OCULAR HYPERAEMIA [None]
